APPROVED DRUG PRODUCT: NALBUPHINE HYDROCHLORIDE
Active Ingredient: NALBUPHINE HYDROCHLORIDE
Strength: 10MG/ML (10MG/ML)
Dosage Form/Route: SOLUTION;INTRAMUSCULAR, INTRAVENOUS, SUBCUTANEOUS
Application: A070914 | Product #001 | TE Code: AP
Applicant: HOSPIRA INC
Approved: Feb 3, 1989 | RLD: No | RS: Yes | Type: RX